FAERS Safety Report 7288232-9 (Version None)
Quarter: 2011Q1

REPORT INFORMATION
  Report Type: 
  Country: None (occurrence: None)
  Receive Date: 20110211
  Receipt Date: 20110201
  Transmission Date: 20110831
  Serious: Yes (Other)
  Sender: FDA-Public Use
  Company Number: JP-ROCHE-729894

PATIENT
  Sex: Male
  Weight: 65 kg

DRUGS (4)
  1. PACLITAXEL [Concomitant]
     Route: 041
     Dates: start: 20100705, end: 20100705
  2. CARBOPLATIN [Concomitant]
     Route: 041
     Dates: start: 20100705, end: 20100705
  3. AVASTIN [Suspect]
     Indication: LUNG ADENOCARCINOMA
     Route: 041
     Dates: start: 20100705
  4. SPIRIVA [Concomitant]
     Dosage: DOSE FORM: RESPIRATORY TONIC
     Route: 055
     Dates: start: 20100624

REACTIONS (1)
  - ATRIAL FIBRILLATION [None]
